FAERS Safety Report 25173801 (Version 1)
Quarter: 2025Q2

REPORT INFORMATION
  Report Type: Spontaneous
  Country: PL (occurrence: PL)
  Receive Date: 20250408
  Receipt Date: 20250408
  Transmission Date: 20250716
  Serious: Yes (Death, Other)
  Sender: DAIICHI
  Company Number: PL-ASTRAZENECA-202504EEA000952PL

PATIENT
  Age: 38 Year
  Sex: Female

DRUGS (1)
  1. TRASTUZUMAB DERUXTECAN [Suspect]
     Active Substance: TRASTUZUMAB DERUXTECAN
     Indication: HER2 low breast cancer
     Route: 065
     Dates: start: 20231214

REACTIONS (11)
  - Death [Fatal]
  - Cardiac failure chronic [Unknown]
  - Cardiomyopathy [Unknown]
  - Metastases to liver [Unknown]
  - Cardiac valve sclerosis [Unknown]
  - Metastases to bone [Unknown]
  - Ventricular hypokinesia [Unknown]
  - Hepatic fibrosis [Unknown]
  - Malignant neoplasm progression [Unknown]
  - Ejection fraction decreased [Unknown]
  - Troponin decreased [Unknown]

NARRATIVE: CASE EVENT DATE: 20240701
